FAERS Safety Report 7508372-6 (Version None)
Quarter: 2011Q2

REPORT INFORMATION
  Report Type: 
  Country: None (occurrence: None)
  Receive Date: 20110527
  Receipt Date: 20110523
  Transmission Date: 20111010
  Serious: Yes (Other)
  Sender: FDA-Public Use
  Company Number: US-PFIZER INC-2011059056

PATIENT
  Sex: Female

DRUGS (6)
  1. LOVAZA [Concomitant]
     Dosage: UNK
     Dates: start: 20080101
  2. BENADRYL [Concomitant]
     Indication: PRURITUS
     Dosage: UNK
     Dates: start: 19800101
  3. AMLODIPINE/VALSARTAN [Concomitant]
     Indication: HYPERTENSION
     Dosage: UNK
     Dates: start: 20080101
  4. BENADRYL [Concomitant]
     Indication: SINUS DISORDER
  5. CHANTIX [Suspect]
     Indication: SMOKING CESSATION THERAPY
     Dosage: 1 MG, UNK
     Dates: start: 20090101, end: 20091001
  6. SITAGLIPTIN [Concomitant]
     Indication: DIABETES MELLITUS
     Dosage: UNK
     Dates: start: 20050101

REACTIONS (4)
  - DEPRESSION [None]
  - ANXIETY [None]
  - MENTAL DISORDER [None]
  - SUICIDAL IDEATION [None]
